FAERS Safety Report 8333184-3 (Version None)
Quarter: 2012Q2

REPORT INFORMATION
  Report Type: 
  Country: None (occurrence: None)
  Receive Date: 20120503
  Receipt Date: 20120418
  Transmission Date: 20120825
  Serious: Yes (Hospitalization)
  Sender: FDA-Public Use
  Company Number: HU-AMGEN-HUNCT2012026664

PATIENT
  Age: 15 Year
  Sex: Male
  Weight: 66.8 kg

DRUGS (3)
  1. ETANERCEPT [Suspect]
     Indication: JUVENILE ARTHRITIS
     Dosage: 50 MG, QWK
     Route: 058
     Dates: start: 20120322
  2. METHOTREXATE [Concomitant]
     Indication: JUVENILE ARTHRITIS
     Dosage: 20 MG, WEEKLY
     Route: 048
     Dates: start: 20091127
  3. FOLIC ACID [Concomitant]
     Indication: JUVENILE ARTHRITIS
     Dosage: 3 MG, 2X/WEEK
     Route: 048
     Dates: start: 20091127

REACTIONS (2)
  - DEPRESSION [None]
  - ATTENTION DEFICIT/HYPERACTIVITY DISORDER [None]
